FAERS Safety Report 6088808-0 (Version None)
Quarter: 2009Q1

REPORT INFORMATION
  Report Type: 
  Country: None (occurrence: None)
  Receive Date: 20090224
  Receipt Date: 20090213
  Transmission Date: 20090719
  Serious: Yes (Hospitalization, Other)
  Sender: FDA-Public Use
  Company Number: HQWYE064511MAR05

PATIENT
  Sex: Female

DRUGS (5)
  1. PREMPRO [Suspect]
  2. PROVERA [Suspect]
  3. PREMARIN [Suspect]
  4. ESTRACE [Suspect]
  5. OGEN [Suspect]

REACTIONS (1)
  - BREAST CANCER METASTATIC [None]
